FAERS Safety Report 7607225-2 (Version None)
Quarter: 2011Q3

REPORT INFORMATION
  Report Type: 
  Country: None (occurrence: None)
  Receive Date: 20110713
  Receipt Date: 20110707
  Transmission Date: 20111222
  Serious: Yes (Life-Threatening, Hospitalization)
  Sender: FDA-Public Use
  Company Number: JP-PFIZER INC-2011104052

PATIENT
  Age: 67 Year
  Sex: Female

DRUGS (9)
  1. ZYVOX [Suspect]
     Indication: STAPHYLOCOCCAL INFECTION
     Dosage: 1200 MG, 1X/DAY
     Route: 041
     Dates: start: 20110510, end: 20110516
  2. HICALIQ [Concomitant]
     Dosage: UNK
     Route: 041
     Dates: start: 20110511, end: 20110519
  3. VANCOMYCIN [Concomitant]
     Indication: STAPHYLOCOCCAL INFECTION
     Dosage: UNK
     Route: 041
     Dates: start: 20110509, end: 20110509
  4. ELASPOL [Concomitant]
     Dosage: UNK
     Route: 041
     Dates: start: 20110511, end: 20110518
  5. PROPOFOL [Concomitant]
     Dosage: UNK
     Route: 041
     Dates: start: 20110511, end: 20110517
  6. DOPAMINE HYDROCHLORIDE [Concomitant]
     Dosage: UNK
     Dates: start: 20110511, end: 20110520
  7. CEFTRIAXONE [Concomitant]
     Dosage: 1 G, 1X/DAY
     Dates: start: 20110511, end: 20110517
  8. PHENYTOIN [Concomitant]
     Dosage: UNK
     Route: 041
     Dates: start: 20110511, end: 20110519
  9. LEPETAN [Concomitant]
     Dosage: 0.4 MG, 1X/DAY
     Route: 041
     Dates: start: 20110511, end: 20110517

REACTIONS (2)
  - VENTRICULAR TACHYCARDIA [None]
  - ELECTROCARDIOGRAM QT PROLONGED [None]
